FAERS Safety Report 12772303 (Version 4)
Quarter: 2016Q4

REPORT INFORMATION
  Report Type: Spontaneous
  Country: JP (occurrence: JP)
  Receive Date: 20160922
  Receipt Date: 20161230
  Transmission Date: 20170207
  Serious: Yes (Hospitalization, Other)
  Sender: FDA-Public Use
  Company Number: JP-FRI-1000087629

PATIENT
  Age: 74 Year
  Sex: Female
  Weight: 39 kg

DRUGS (4)
  1. DONEPEZIL HYDROCHLORIDE. [Concomitant]
     Active Substance: DONEPEZIL HYDROCHLORIDE
     Indication: DEMENTIA
     Dosage: 5 MG, QD
     Route: 048
     Dates: start: 20120908, end: 20160827
  2. YOKUKANSAN [Concomitant]
     Active Substance: HERBALS
     Indication: IRRITABILITY
     Dosage: 2.5 G, BID
     Route: 048
     Dates: start: 20140424, end: 20160827
  3. ESCITALOPRAM OXALATE UNK [Suspect]
     Active Substance: ESCITALOPRAM OXALATE
     Indication: PRODUCT USED FOR UNKNOWN INDICATION
     Dosage: UNK
     Route: 048
     Dates: start: 20140412, end: 20160802
  4. ZOPICLONE [Concomitant]
     Active Substance: ZOPICLONE
     Indication: INSOMNIA
     Dosage: 7.5 MG, QD
     Route: 048
     Dates: start: 20130312, end: 20160827

REACTIONS (4)
  - Loss of consciousness [Unknown]
  - Syncope [Recovered/Resolved]
  - Sinus node dysfunction [Recovered/Resolved]
  - Dizziness [Unknown]

NARRATIVE: CASE EVENT DATE: 201608
